APPROVED DRUG PRODUCT: LABETALOL HYDROCHLORIDE
Active Ingredient: LABETALOL HYDROCHLORIDE
Strength: 300MG
Dosage Form/Route: TABLET;ORAL
Application: A074989 | Product #003
Applicant: TEVA PHARMACEUTICALS USA INC
Approved: Sep 30, 1998 | RLD: No | RS: No | Type: DISCN